FAERS Safety Report 16017292 (Version 2)
Quarter: 2019Q2

REPORT INFORMATION
  Report Type: Spontaneous
  Country: PK (occurrence: PK)
  Receive Date: 20190228
  Receipt Date: 20190613
  Transmission Date: 20190711
  Serious: Yes (Death)
  Sender: FDA-Public Use
  Company Number: PK-PFIZER INC-2019090933

PATIENT
  Age: 69 Year
  Sex: Male

DRUGS (6)
  1. TRIMETABOL [CARNITINE HYDROCHLORIDE;CYANOCOBALAMIN;CYPROHEPTADINE ACEF [Concomitant]
     Dosage: UNK UNK, 3X/DAY
  2. NEUROBION [CYANOCOBALAMIN;PYRIDOXINE HYDROCHLORIDE;THIAMINE DISULFIDE] [Concomitant]
  3. ABOCAL [Concomitant]
     Dosage: 30, 1X/DAY
     Dates: start: 20181106
  4. NUBEROL FORTE [Concomitant]
     Dosage: UNK UNK, 3X/DAY
     Dates: start: 20181106
  5. SUTENT [Suspect]
     Active Substance: SUNITINIB MALATE
     Indication: METASTATIC RENAL CELL CARCINOMA
     Dosage: 37.5 MG (12.5MG X3)
     Route: 048
     Dates: start: 20181109
  6. ENSURE [ASCORBIC ACID;BIOTIN;CALCIUM CARBONATE;CALCIUM PANTOTHENATE;CA [Concomitant]
     Dosage: 3 SCOOPS 1X/DAY

REACTIONS (1)
  - Death [Fatal]

NARRATIVE: CASE EVENT DATE: 20181224
